FAERS Safety Report 6728091-3 (Version None)
Quarter: 2010Q2

REPORT INFORMATION
  Report Type: 
  Country: None (occurrence: None)
  Receive Date: 20100517
  Receipt Date: 20100511
  Transmission Date: 20101027
  Serious: Yes (Life-Threatening)
  Sender: FDA-Public Use
  Company Number: PHHY2010AE30786

PATIENT
  Sex: Male
  Weight: 75 kg

DRUGS (1)
  1. NILOTINIB [Suspect]
     Indication: CHRONIC MYELOID LEUKAEMIA
     Dosage: 400 MG, BID
     Route: 048
     Dates: start: 20100502

REACTIONS (1)
  - ELECTROCARDIOGRAM QT PROLONGED [None]
